FAERS Safety Report 14755310 (Version 2)
Quarter: 2018Q2

REPORT INFORMATION
  Report Type: Spontaneous
  Country: BR (occurrence: BR)
  Receive Date: 20180413
  Receipt Date: 20180531
  Transmission Date: 20180711
  Serious: Yes (Hospitalization, Other)
  Sender: FDA-Public Use
  Company Number: BR-ROCHE-2107102

PATIENT
  Age: 48 Year
  Sex: Female

DRUGS (1)
  1. XELODA [Suspect]
     Active Substance: CAPECITABINE
     Indication: BREAST CANCER
     Dosage: 2 TABLETS IN THE MORNING 2 TABLETS AFTER DINNER
     Route: 065

REACTIONS (2)
  - Hallucination, visual [Recovered/Resolved]
  - Pneumonia [Recovered/Resolved]
